FAERS Safety Report 5910599-1 (Version None)
Quarter: 2008Q4

REPORT INFORMATION
  Report Type: 
  Country: None (occurrence: None)
  Receive Date: 20081007
  Receipt Date: 20080930
  Transmission Date: 20090506
  Serious: Yes (Other)
  Sender: FDA-Public Use
  Company Number: CA-JNJFOC-20081000166

PATIENT
  Age: 52 Year
  Sex: Female

DRUGS (1)
  1. LEVAQUIN [Suspect]
     Indication: SINUSITIS
     Route: 065

REACTIONS (6)
  - ASTHENIA [None]
  - EXOSTOSIS [None]
  - HYPERTENSION [None]
  - PAIN [None]
  - PARAESTHESIA [None]
  - PLANTAR FASCIITIS [None]
